FAERS Safety Report 11078326 (Version 2)
Quarter: 2015Q2

REPORT INFORMATION
  Report Type: Spontaneous
  Country: ES (occurrence: None)
  Receive Date: 20150428
  Receipt Date: 20150504
  Transmission Date: 20150821
  Serious: No
  Sender: FDA-Public Use
  Company Number: 1504ESP018611

PATIENT
  Age: 9 Month
  Sex: Male

DRUGS (1)
  1. CEDAX [Suspect]
     Active Substance: CEFTIBUTEN DIHYDRATE
     Dosage: (72 MG)
     Route: 048
     Dates: start: 20150417, end: 20150417

REACTIONS (2)
  - Diarrhoea [None]
  - Product odour abnormal [None]

NARRATIVE: CASE EVENT DATE: 201504
